FAERS Safety Report 19332147 (Version 4)
Quarter: 2021Q3

REPORT INFORMATION
  Report Type: Report from Study
  Country: None (occurrence: US)
  Receive Date: 20210529
  Receipt Date: 20210810
  Transmission Date: 20211014
  Serious: Yes (Hospitalization, Other)
  Sender: FDA-Public Use
  Company Number: US-ABBVIE-21K-163-3923988-00

PATIENT
  Sex: Male

DRUGS (2)
  1. HUMIRA [Suspect]
     Active Substance: ADALIMUMAB
     Indication: RHEUMATOID ARTHRITIS
     Dosage: CITRATE FREE
     Route: 058
  2. HUMIRA [Suspect]
     Active Substance: ADALIMUMAB
     Indication: CROHN^S DISEASE
     Dosage: CITRATE FREE
     Route: 058
     Dates: start: 20191107

REACTIONS (8)
  - Obstruction gastric [Unknown]
  - Blood iron decreased [Recovering/Resolving]
  - Loss of consciousness [Unknown]
  - Dehydration [Unknown]
  - Intestinal obstruction [Unknown]
  - Scar [Unknown]
  - Crohn^s disease [Recovered/Resolved]
  - Small intestinal obstruction [Unknown]

NARRATIVE: CASE EVENT DATE: 2021
